FAERS Safety Report 7394054-0 (Version None)
Quarter: 2011Q2

REPORT INFORMATION
  Report Type: 
  Country: None (occurrence: None)
  Receive Date: 20110405
  Receipt Date: 20101019
  Transmission Date: 20111010
  Serious: No
  Sender: FDA-Public Use
  Company Number: US-AMGEN-USASP2010001295

PATIENT
  Sex: Female

DRUGS (10)
  1. NEULASTA [Suspect]
     Indication: CHEMOTHERAPY
     Dates: start: 20101001
  2. LEVAQUIN [Concomitant]
  3. PEPCID [Concomitant]
  4. MS CONTIN [Concomitant]
  5. AMBIEN [Concomitant]
  6. GEMCITABINE [Concomitant]
  7. SENNA S [Concomitant]
  8. DICLOFENAC [Concomitant]
  9. DOCETAXEL [Concomitant]
  10. LYRICA [Concomitant]

REACTIONS (1)
  - ABDOMINAL PAIN UPPER [None]
